FAERS Safety Report 8008033-3 (Version None)
Quarter: 2011Q4

REPORT INFORMATION
  Report Type: 
  Country: None (occurrence: None)
  Receive Date: 20111123
  Receipt Date: 20111003
  Transmission Date: 20120403
  Serious: No
  Sender: FDA-Public Use
  Company Number: 336916

PATIENT
  Sex: Male

DRUGS (1)
  1. VICTOZA [Suspect]
     Indication: PRODUCT USED FOR UNKNOWN INDICATION
     Dosage: 0.6 MG, EVERY OTHER DAY, SUBCUTANEOUS
     Route: 058
     Dates: start: 20110914

REACTIONS (2)
  - DIARRHOEA [None]
  - MUSCLE SPASMS [None]
